FAERS Safety Report 4394104-X (Version None)
Quarter: 2004Q3

REPORT INFORMATION
  Report Type: 
  Country: None (occurrence: None)
  Receive Date: 20040708
  Receipt Date: 20040708
  Transmission Date: 20050211
  Serious: Yes (Life-Threatening)
  Sender: FDA-Public Use
  Company Number: None

PATIENT
  Age: 66 Year
  Sex: Female
  Weight: 103 kg

DRUGS (17)
  1. ADRIAMYCIN PFS [Suspect]
     Indication: BREAST CANCER
     Dosage: 60 MG/M2 Q 3 WEEKS INTRAVENOUS
     Dates: start: 20040511, end: 20040511
  2. METOPROLOL [Concomitant]
  3. DIOVAN [Concomitant]
  4. CELEBREX [Concomitant]
  5. SPIRONOLACTONE [Concomitant]
  6. ASPIRIN [Concomitant]
  7. LIPITOR [Concomitant]
  8. PREVACID [Concomitant]
  9. STOOL SOFTENER [Concomitant]
  10. VITAMIN B6 [Concomitant]
  11. VITAMIN E [Concomitant]
  12. VITAMIN C [Concomitant]
  13. CENTRUM [Concomitant]
  14. GLUCOSAMINE CHONDROITIN [Concomitant]
  15. DITROPAN [Concomitant]
  16. FOLIC ACID [Concomitant]
  17. CYCLOPHOSPHAMIDE [Suspect]
     Indication: BREAST CANCER
     Dosage: 60 MG Q 3 WEEKS  IV
     Route: 042
     Dates: start: 20040511, end: 20040511

REACTIONS (1)
  - NEUTROPHIL COUNT DECREASED [None]
